FAERS Safety Report 11939073 (Version 2)
Quarter: 2016Q1

REPORT INFORMATION
  Report Type: Spontaneous
  Country: SK (occurrence: SK)
  Receive Date: 20160122
  Receipt Date: 20160215
  Transmission Date: 20160526
  Serious: Yes (Hospitalization, Other)
  Sender: FDA-Public Use
  Company Number: SK-PFIZER INC-2015454618

PATIENT
  Age: 81 Year
  Sex: Male

DRUGS (13)
  1. CORDARONE [Concomitant]
     Active Substance: AMIODARONE HYDROCHLORIDE
     Dosage: 1-0-0 /SATURDAY AND SUNDAY EXCLUDED
  2. FURON [Concomitant]
     Active Substance: FUROSEMIDE
     Dosage: 40 MG, 1X/DAY (1-0-0)
  3. EBRANTIL [Concomitant]
     Active Substance: URAPIDIL
     Dosage: 60 MG, 3X/DAY (1-1-1)
  4. TORVACARD [Concomitant]
     Active Substance: ATORVASTATIN CALCIUM
     Dosage: 20 MG, 1X/DAY (0-0-1)
  5. VEROSPIRON [Concomitant]
     Active Substance: SPIRONOLACTONE
     Dosage: UNK, 1X/DAY (1-0-0)
  6. SUTENT [Suspect]
     Active Substance: SUNITINIB MALATE
     Dosage: 50 MG, ALTERNATE DAY (EVERY OTHER DAY)
  7. TELMISARTAN. [Concomitant]
     Active Substance: TELMISARTAN
     Dosage: 80 MG, 1X/DAY (1-0-0)
  8. NEUROL [Concomitant]
     Active Substance: ALPRAZOLAM
     Dosage: 0.25 UNK, UNK (FOR NIGHT)
  9. BISOPROLOL [Concomitant]
     Active Substance: BISOPROLOL
     Dosage: 5 MG, 1X/DAY; 1/2-0-0
  10. ENELBIN [Concomitant]
     Active Substance: NAFRONYL
  11. LACIPIL [Concomitant]
     Active Substance: LACIDIPINE
     Dosage: 4 MG, 1X/DAY (1-0-0)
  12. ANOPYRIN [Concomitant]
     Active Substance: ASPIRIN
     Dosage: 100 MG, 1X/DAY (0-1-0 - HE MISSED)
  13. SUTENT [Suspect]
     Active Substance: SUNITINIB MALATE
     Indication: RENAL CANCER
     Dosage: 50 MG, CYCLIC (DAILY FOR 28 DAYS)
     Dates: start: 20150306

REACTIONS (8)
  - Hypertension [Unknown]
  - Anaemia [Unknown]
  - Hypoproteinaemia [Unknown]
  - Oedema peripheral [Unknown]
  - Thrombocytopenia [Recovered/Resolved]
  - Renal cancer [Unknown]
  - Nephropathy toxic [Recovered/Resolved]
  - Disease progression [Unknown]

NARRATIVE: CASE EVENT DATE: 20150402
